FAERS Safety Report 19942382 (Version 1)
Quarter: 2021Q4

REPORT INFORMATION
  Report Type: Spontaneous
  Country: US (occurrence: US)
  Receive Date: 20211011
  Receipt Date: 20211011
  Transmission Date: 20220303
  Serious: Yes (Hospitalization)
  Sender: FDA-Public Use
  Company Number: None

PATIENT
  Age: 83 Year
  Sex: Male

DRUGS (1)
  1. REPATHA [Suspect]
     Active Substance: EVOLOCUMAB
     Indication: Type IIa hyperlipidaemia
     Dosage: ?          OTHER FREQUENCY:Q2WKS;
     Route: 058
     Dates: start: 20181118

REACTIONS (2)
  - Cardiac operation [None]
  - Coronary arterial stent insertion [None]

NARRATIVE: CASE EVENT DATE: 20211006
